FAERS Safety Report 21981560 (Version 1)
Quarter: 2023Q1

REPORT INFORMATION
  Report Type: Other
  Country: None (occurrence: CN)
  Receive Date: 20230212
  Receipt Date: 20230212
  Transmission Date: 20230418
  Serious: Yes (Other)
  Sender: FDA-Public Use
  Company Number: CN-Appco Pharma LLC-2137799

PATIENT
  Age: 32 Year
  Sex: Female

DRUGS (2)
  1. HYDROXYCHLOROQUINE SULFATE [Suspect]
     Active Substance: HYDROXYCHLOROQUINE SULFATE
     Indication: Alport^s syndrome
     Route: 065
  2. CYCLOSPORINE [Suspect]
     Active Substance: CYCLOSPORINE
     Route: 065

REACTIONS (3)
  - Drug ineffective [Unknown]
  - Foetal growth restriction [Unknown]
  - Maternal exposure during pregnancy [Unknown]
